FAERS Safety Report 4659897-2 (Version None)
Quarter: 2005Q2

REPORT INFORMATION
  Report Type: 
  Country: None (occurrence: None)
  Receive Date: 20050510
  Receipt Date: 20050113
  Transmission Date: 20051028
  Serious: Yes (Hospitalization)
  Sender: FDA-Public Use
  Company Number: PAR_0030_2005

PATIENT
  Age: 72 Year
  Sex: Female

DRUGS (9)
  1. VERAPAMIL [Suspect]
     Indication: HYPERTROPHIC CARDIOMYOPATHY
     Dosage: 2 TAB TID PO; 1 TAB TID PO
     Route: 048
     Dates: start: 19921108, end: 20041207
  2. VERAPAMIL [Suspect]
     Indication: HYPERTROPHIC CARDIOMYOPATHY
     Dosage: 2 TAB TID PO; 1 TAB TID PO
     Route: 048
     Dates: start: 20041207
  3. NICORANDIL [Suspect]
     Indication: ANGINA PECTORIS
     Dosage: 3 DF QDAY PO
     Route: 048
     Dates: start: 19971021
  4. CIPRALAN [Suspect]
     Indication: HYPERTROPHIC CARDIOMYOPATHY
     Dosage: 200 MG QDAY PO
     Route: 048
     Dates: start: 20041001, end: 20041115
  5. FAMOTIDINE [Concomitant]
  6. LEVOTHYROXINE SODIUM [Concomitant]
  7. MAGNESIUM OXIDE [Concomitant]
  8. MOSAPRIDE CITRATE [Concomitant]
  9. P MAGEN [Concomitant]

REACTIONS (7)
  - ALANINE AMINOTRANSFERASE INCREASED [None]
  - ANOREXIA [None]
  - ASPARTATE AMINOTRANSFERASE INCREASED [None]
  - HEPATIC FUNCTION ABNORMAL [None]
  - LIVER DISORDER [None]
  - MALAISE [None]
  - NAUSEA [None]
